FAERS Safety Report 5106534-9 (Version None)
Quarter: 2006Q3

REPORT INFORMATION
  Report Type: 
  Country: None (occurrence: None)
  Receive Date: 20060731
  Receipt Date: 20060124
  Transmission Date: 20061208
  Serious: Yes (Other)
  Sender: FDA-Public Use
  Company Number: US-JNJFOC-20060105634

PATIENT
  Sex: Female

DRUGS (1)
  1. RISPERDAL [Suspect]
     Indication: BIPOLAR DISORDER
     Dosage: 0.75 MG, IN 1 DAY, ORAL
     Route: 048
     Dates: start: 20051202, end: 20051209

REACTIONS (3)
  - ANXIETY [None]
  - DEPRESSION [None]
  - SUICIDAL IDEATION [None]
